FAERS Safety Report 19644990 (Version 1)
Quarter: 2021Q3

REPORT INFORMATION
  Report Type: Other
  Country: CA (occurrence: CA)
  Receive Date: 20210802
  Receipt Date: 20210802
  Transmission Date: 20211014
  Serious: Yes (Hospitalization, Other)
  Sender: FDA-Public Use
  Company Number: CA-APOTEX-2021AP023819

PATIENT
  Age: 72 Year
  Sex: Female

DRUGS (2)
  1. DILTIAZEM. [Suspect]
     Active Substance: DILTIAZEM
     Indication: ACUTE MYOCARDIAL INFARCTION
  2. DILTIAZEM. [Suspect]
     Active Substance: DILTIAZEM
     Indication: HYPERTENSION
     Dosage: UNK
     Route: 048

REACTIONS (3)
  - Bleeding time prolonged [Unknown]
  - Oesophageal haemorrhage [Unknown]
  - Drug interaction [Unknown]
